FAERS Safety Report 9607708 (Version 1)
Quarter: 2013Q4

REPORT INFORMATION
  Report Type: Spontaneous
  Country: US (occurrence: None)
  Receive Date: 20131008
  Receipt Date: 20131008
  Transmission Date: 20140711
  Serious: Yes (Death)
  Sender: FDA-Public Use
  Company Number: None

PATIENT
  Age: 44 Year
  Sex: Male
  Weight: 86.18 kg

DRUGS (1)
  1. ZYPREXA RELPREVV [Suspect]
     Indication: SCHIZOPHRENIA
     Dosage: 300 MG 2X PER MONTH, INJECTION AT THE LOCAL MEDICAL FACILITY
     Dates: start: 2011, end: 20121024

REACTIONS (1)
  - Toxicity to various agents [None]
